FAERS Safety Report 7226036-3 (Version None)
Quarter: 2011Q1

REPORT INFORMATION
  Report Type: 
  Country: None (occurrence: None)
  Receive Date: 20110113
  Receipt Date: 20101231
  Transmission Date: 20110831
  Serious: No
  Sender: FDA-Public Use
  Company Number: US-B.I. PHARMACEUTICALS,INC./RIDGEFIELD-2011-BP-00401BP

PATIENT
  Sex: Female

DRUGS (6)
  1. PRADAXA [Suspect]
     Indication: ATRIAL FIBRILLATION
     Dosage: 150 MG
     Route: 048
     Dates: start: 20101130
  2. ALENDRONATE [Concomitant]
     Indication: PROPHYLAXIS
  3. LEVOTHYROXINE [Concomitant]
     Indication: THYROID DISORDER
  4. FAMOTIDINE [Concomitant]
     Indication: POSTOPERATIVE CARE
     Dosage: 40 MG
     Dates: start: 20010101
  5. PRAVASTATIN [Concomitant]
     Indication: BLOOD CHOLESTEROL INCREASED
  6. DONEPEZIL HCL [Concomitant]
     Indication: MEMORY IMPAIRMENT
     Dates: start: 20080101

REACTIONS (1)
  - ASTHENIA [None]
